FAERS Safety Report 5069732-9 (Version None)
Quarter: 2006Q3

REPORT INFORMATION
  Report Type: 
  Country: None (occurrence: None)
  Receive Date: 20060803
  Receipt Date: 20060728
  Transmission Date: 20061208
  Serious: Yes (Death)
  Sender: FDA-Public Use
  Company Number: TR-BRISTOL-MYERS SQUIBB COMPANY-13463450

PATIENT
  Age: 2 Year
  Sex: Female

DRUGS (6)
  1. VINCRISTINE SULFATE [Suspect]
     Indication: GANGLIONEUROBLASTOMA
  2. CISPLATIN [Suspect]
     Indication: GANGLIONEUROBLASTOMA
  3. ETOPOSIDE [Suspect]
     Indication: GANGLIONEUROBLASTOMA
  4. DACARBAZINE [Suspect]
     Indication: GANGLIONEUROBLASTOMA
  5. ADRIAMYCIN PFS [Suspect]
     Indication: GANGLIONEUROBLASTOMA
  6. RADIATION THERAPY [Suspect]
     Indication: GANGLIONEUROBLASTOMA

REACTIONS (2)
  - ACUTE LYMPHOCYTIC LEUKAEMIA [None]
  - TREATMENT RELATED SECONDARY MALIGNANCY [None]
